FAERS Safety Report 7451202-1 (Version None)
Quarter: 2011Q2

REPORT INFORMATION
  Report Type: 
  Country: None (occurrence: None)
  Receive Date: 20110502
  Receipt Date: 20110425
  Transmission Date: 20111010
  Serious: Yes (Other)
  Sender: FDA-Public Use
  Company Number: PHHY2011BR35895

PATIENT
  Sex: Female

DRUGS (1)
  1. EXFORGE HCT [Suspect]
     Dosage: 160 MG VALS, 5 MG AMLO AND 12.5 MG HCT, UNK

REACTIONS (2)
  - HYPERTENSION [None]
  - SWELLING [None]
